FAERS Safety Report 23275364 (Version 2)
Quarter: 2024Q1

REPORT INFORMATION
  Report Type: Spontaneous
  Country: ES (occurrence: ES)
  Receive Date: 20231208
  Receipt Date: 20240106
  Transmission Date: 20240409
  Serious: Yes (Other)
  Sender: FDA-Public Use
  Company Number: ES-AUROBINDO-AUR-APL-2023-077006

PATIENT
  Age: 63 Year
  Sex: Female

DRUGS (4)
  1. EXEMESTANE [Suspect]
     Active Substance: EXEMESTANE
     Indication: Breast cancer metastatic
     Dosage: 25 MILLIGRAM, DAILY
     Route: 065
     Dates: start: 202207
  2. EXEMESTANE [Suspect]
     Active Substance: EXEMESTANE
     Indication: Disease progression
  3. RIBOCICLIB [Suspect]
     Active Substance: RIBOCICLIB
     Indication: Breast cancer metastatic
     Dosage: 600 MILLIGRAM, DAILY
     Route: 065
     Dates: start: 202207
  4. RIBOCICLIB [Suspect]
     Active Substance: RIBOCICLIB
     Indication: Disease progression

REACTIONS (1)
  - Subacute cutaneous lupus erythematosus [Recovered/Resolved]
